FAERS Safety Report 5186878-5 (Version None)
Quarter: 2006Q4

REPORT INFORMATION
  Report Type: 
  Country: None (occurrence: None)
  Receive Date: 20061213
  Receipt Date: 20061204
  Transmission Date: 20070319
  Serious: Yes (Death, Other)
  Sender: FDA-Public Use
  Company Number: 2005092334

PATIENT
  Age: 47 Year
  Sex: Male

DRUGS (4)
  1. NEURONTIN [Suspect]
     Indication: NECROSIS
     Dosage: 900 MG (300 MG, 3 IN 1 D)
     Dates: start: 20020218
  2. OXYCONTIN [Suspect]
  3. HYDROCODONE BITARTRATE [Suspect]
  4. OXYCODONE AND ACETAMINOPHEN [Suspect]

REACTIONS (8)
  - APNOEA [None]
  - CARDIAC ARREST [None]
  - COMPLETED SUICIDE [None]
  - DRUG INEFFECTIVE [None]
  - LOSS OF CONSCIOUSNESS [None]
  - MULTIPLE DRUG OVERDOSE [None]
  - PERIPHERAL COLDNESS [None]
  - PULSE ABSENT [None]
